FAERS Safety Report 17755572 (Version 1)
Quarter: 2020Q2

REPORT INFORMATION
  Report Type: Spontaneous
  Country: US (occurrence: US)
  Receive Date: 20200506
  Receipt Date: 20200506
  Transmission Date: 20200714
  Serious: Yes (Hospitalization)
  Sender: FDA-Public Use
  Company Number: None

PATIENT
  Sex: Female

DRUGS (16)
  1. ADVAIR HFA [Concomitant]
     Active Substance: FLUTICASONE PROPIONATE\SALMETEROL XINAFOATE
  2. ZOLIPIDEM [Concomitant]
  3. SIMPONI [Suspect]
     Active Substance: GOLIMUMAB
     Indication: ARTHROPATHY
     Route: 058
     Dates: start: 20191227
  4. ESOMEPRA MAG [Concomitant]
  5. ESCITALOPRAM [Concomitant]
     Active Substance: ESCITALOPRAM OXALATE
  6. PREGABALIN. [Concomitant]
     Active Substance: PREGABALIN
  7. CYCLOBENZAPR [Concomitant]
     Active Substance: CYCLOBENZAPRINE
  8. HYDROXCHLOR [Concomitant]
  9. METOPROL SUC [Concomitant]
  10. PROAIR HFA [Concomitant]
     Active Substance: ALBUTEROL SULFATE
  11. TIZANIDINE. [Concomitant]
     Active Substance: TIZANIDINE
  12. VIT D [Concomitant]
     Active Substance: VITAMIN D NOS
  13. FAMCICLOVIR. [Concomitant]
     Active Substance: FAMCICLOVIR
  14. FOLIC ACID. [Concomitant]
     Active Substance: FOLIC ACID
  15. ESTRADIOL. [Concomitant]
     Active Substance: ESTRADIOL
  16. LISINOPRIL. [Concomitant]
     Active Substance: LISINOPRIL

REACTIONS (2)
  - Therapy interrupted [None]
  - Tumour excision [None]
